FAERS Safety Report 4974565-5 (Version None)
Quarter: 2006Q2

REPORT INFORMATION
  Report Type: 
  Country: None (occurrence: None)
  Receive Date: 20060410
  Receipt Date: 20060327
  Transmission Date: 20061013
  Serious: Yes (Death)
  Sender: FDA-Public Use
  Company Number: 2006043434

PATIENT
  Sex: Female

DRUGS (5)
  1. SILDENAFIL CITRATE [Suspect]
     Indication: PULMONARY HYPERTENSION
     Dosage: 75 MG (25 MG, 3 IN 1 D), ORAL
     Route: 048
     Dates: start: 20051101, end: 20051201
  2. DIURETICS (DIURETICS) [Concomitant]
  3. ACE INHIBITOR NOS (ACE INHIBITOR NOS) [Concomitant]
  4. ANTICOAGULANTS (ANTITHROMBOTIC AGENTS) [Concomitant]
  5. VANCOMYCIN [Concomitant]

REACTIONS (2)
  - HAEMORRHAGE INTRACRANIAL [None]
  - PNEUMONIA [None]
